FAERS Safety Report 7308006-X (Version None)
Quarter: 2011Q1

REPORT INFORMATION
  Report Type: 
  Country: None (occurrence: None)
  Receive Date: 20110223
  Receipt Date: 20110216
  Transmission Date: 20110831
  Serious: Yes (Death)
  Sender: FDA-Public Use
  Company Number: IT-ROCHE-613194

PATIENT
  Sex: Male
  Weight: 70 kg

DRUGS (11)
  1. LOPERAMIDE [Concomitant]
     Dates: start: 20090103, end: 20090107
  2. ANTRA [Concomitant]
     Dates: start: 20081117
  3. SOLDESAM [Concomitant]
     Dates: start: 20081117
  4. NEURONTIN [Concomitant]
     Dates: start: 20081117
  5. CAPECITABINE [Suspect]
     Route: 048
     Dates: start: 20081124
  6. CAPECITABINE [Suspect]
     Dosage: TWICE DAILY X 14 DAYS Q 3 WEEKS PER SYNOPSIS
     Route: 048
     Dates: start: 20081216
  7. CAPECITABINE [Suspect]
     Dosage: TWICE DAILY X 14 DAYS Q 3 WEEKS PER SYNOPSIS; DATE OF LAST DOSE PRIOR TO SAE GIVEN ON 30 JAN 2009.
     Route: 048
     Dates: start: 20090115, end: 20090204
  8. BEVACIZUMAB [Suspect]
     Dosage: DATE OF LAST DOSE PRIOR TO SAE GIVEN ON 15 JANUARY 2009; REPORTED AS INFUSION.
     Route: 042
     Dates: start: 20081124, end: 20090204
  9. ONDANSETRON [Concomitant]
     Dates: start: 20081124, end: 20090115
  10. OXALIPLATIN [Suspect]
     Dosage: DATE OF LAST DOSE PRIOR TO SAE GIVEN ON 15 JANUARY 2009; REPORTED AS INFUSION.
     Route: 042
     Dates: start: 20081124, end: 20090204
  11. HYDROMORPHONE HCL [Concomitant]
     Dates: start: 20081117

REACTIONS (1)
  - CARDIOVASCULAR DISORDER [None]
